FAERS Safety Report 8364165-1 (Version None)
Quarter: 2012Q2

REPORT INFORMATION
  Report Type: 
  Country: None (occurrence: None)
  Receive Date: 20120516
  Receipt Date: 20120507
  Transmission Date: 20120825
  Serious: Yes (Hospitalization)
  Sender: FDA-Public Use
  Company Number: CA-JNJFOC-20120201685

PATIENT
  Sex: Female
  Weight: 45 kg

DRUGS (5)
  1. METHOTREXATE [Concomitant]
     Route: 048
  2. REMICADE [Suspect]
     Indication: CROHN'S DISEASE
     Route: 042
     Dates: start: 20120128
  3. REMICADE [Suspect]
     Route: 042
     Dates: start: 20100101
  4. REMICADE [Suspect]
     Dosage: 52 WEEKS
     Route: 042
     Dates: start: 20120131
  5. SOLU-CORTEF [Concomitant]
     Route: 042

REACTIONS (6)
  - FLUSHING [None]
  - INFUSION RELATED REACTION [None]
  - TREMOR [None]
  - ANXIETY [None]
  - THROAT TIGHTNESS [None]
  - COUGH [None]
